FAERS Safety Report 4690353-1 (Version None)
Quarter: 2005Q2

REPORT INFORMATION
  Report Type: 
  Country: None (occurrence: None)
  Receive Date: 20050615
  Receipt Date: 20050601
  Transmission Date: 20051028
  Serious: Yes (Other)
  Sender: FDA-Public Use
  Company Number: NL-ROCHE-407353

PATIENT
  Age: 18 Year
  Sex: Male

DRUGS (1)
  1. ROACCUTANE [Suspect]
     Indication: ACNE
     Route: 048
     Dates: start: 19991001

REACTIONS (4)
  - ANXIETY [None]
  - DEPRESSION [None]
  - RESTLESSNESS [None]
  - SUICIDAL IDEATION [None]
